FAERS Safety Report 6403514-8 (Version None)
Quarter: 2009Q4

REPORT INFORMATION
  Report Type: 
  Country: None (occurrence: None)
  Receive Date: 20091016
  Receipt Date: 20091005
  Transmission Date: 20100525
  Serious: Yes (Other)
  Sender: FDA-Public Use
  Company Number: DE-PFIZER INC-2009257969

PATIENT

DRUGS (4)
  1. SUTENT [Suspect]
     Dosage: UNK
     Route: 048
     Dates: start: 20080701
  2. AMLODIPINE [Concomitant]
  3. IBUPROFEN [Concomitant]
  4. PANTOZOL [Concomitant]

REACTIONS (1)
  - ANGIOEDEMA [None]
